FAERS Safety Report 7621239-8 (Version None)
Quarter: 2011Q3

REPORT INFORMATION
  Report Type: 
  Country: None (occurrence: None)
  Receive Date: 20110719
  Receipt Date: 20110714
  Transmission Date: 20111222
  Serious: Yes (Hospitalization)
  Sender: FDA-Public Use
  Company Number: US-B.I. PHARMACEUTICALS,INC./RIDGEFIELD-2011-BP-16144BP

PATIENT
  Sex: Male

DRUGS (12)
  1. TERAZOSIN HCL [Concomitant]
     Indication: HYPERTENSION
     Dosage: 2 MG
     Route: 048
     Dates: start: 20110514
  2. TOPROL-XL [Concomitant]
     Indication: HYPERTENSION
     Dosage: 25 MG
     Route: 048
  3. BENICAR [Concomitant]
     Indication: HYPERTENSION
     Dosage: 20 MG
     Route: 048
     Dates: start: 20110514
  4. POTASSIUM [Concomitant]
     Indication: ROUTINE HEALTH MAINTENANCE
     Dosage: 10 MEQ
     Route: 048
  5. ASPIRIN [Concomitant]
     Indication: ROUTINE HEALTH MAINTENANCE
     Dosage: 81 MG
     Route: 048
     Dates: start: 20040101, end: 20110501
  6. ZOCOR [Concomitant]
     Indication: BLOOD CHOLESTEROL INCREASED
     Dosage: 40 MG
     Route: 048
     Dates: start: 20110514
  7. FUROSEMIDE [Concomitant]
     Indication: ARRHYTHMIA
     Dosage: 60 MG
     Route: 048
  8. ALLOPURINOL [Concomitant]
     Indication: GOUT
     Dosage: 300 MG
     Route: 048
  9. FERROUS SULFATE TAB [Concomitant]
     Indication: ROUTINE HEALTH MAINTENANCE
     Dosage: 325 MG
  10. COUMADIN [Concomitant]
     Indication: CARDIAC DISORDER
     Route: 048
     Dates: start: 20110514
  11. PRADAXA [Suspect]
     Indication: ATRIAL FIBRILLATION
     Dosage: 300 MG
     Route: 048
     Dates: start: 20110101, end: 20110513
  12. PROTONIX [Concomitant]
     Indication: GASTROINTESTINAL HAEMORRHAGE
     Dosage: 40 MG
     Route: 048

REACTIONS (1)
  - GASTROINTESTINAL HAEMORRHAGE [None]
